FAERS Safety Report 9330662 (Version 1)
Quarter: 2013Q2

REPORT INFORMATION
  Report Type: Spontaneous
  Country: US (occurrence: None)
  Receive Date: 20130604
  Receipt Date: 20130604
  Transmission Date: 20140414
  Serious: No
  Sender: FDA-Public Use
  Company Number: None

PATIENT
  Age: 50 Year
  Sex: Male
  Weight: 94.3 kg

DRUGS (1)
  1. INTRON A [Suspect]

REACTIONS (1)
  - Blood creatine phosphokinase increased [None]
